FAERS Safety Report 8988208 (Version 1)
Quarter: 2012Q4

REPORT INFORMATION
  Report Type: 
  Country: JP (occurrence: JP)
  Receive Date: 20121227
  Receipt Date: 20121227
  Transmission Date: 20130627
  Serious: Yes (Death, Other)
  Sender: FDA-Public Use
  Company Number: JP-ASTELLAS-2012JP012064

PATIENT
  Age: 15 Year
  Sex: Female
  Weight: 33.6 kg

DRUGS (20)
  1. PROGRAF [Suspect]
     Indication: IMMUNOSUPPRESSANT DRUG THERAPY
     Route: 065
  2. PROGRAF [Suspect]
     Route: 065
  3. PROGRAF [Suspect]
     Indication: PROPHYLAXIS AGAINST GRAFT VERSUS HOST DISEASE
     Dosage: UNK
     Route: 041
  4. PROGRAF [Suspect]
     Dosage: UNK
     Route: 041
  5. PREDNISOLONE [Concomitant]
     Indication: IMMUNOSUPPRESSANT DRUG THERAPY
     Route: 065
  6. PREDNISOLONE [Concomitant]
     Indication: PROPHYLAXIS AGAINST GRAFT VERSUS HOST DISEASE
     Route: 065
  7. PREDNISOLONE [Concomitant]
     Route: 065
  8. CELLCEPT                           /01275102/ [Concomitant]
     Indication: IMMUNOSUPPRESSANT DRUG THERAPY
     Route: 048
  9. CELLCEPT                           /01275102/ [Concomitant]
     Indication: PROPHYLAXIS AGAINST GRAFT VERSUS HOST DISEASE
     Route: 048
  10. PENTAMIDINE ISETHIONATE [Concomitant]
     Indication: PNEUMOCYSTIS JIROVECI PNEUMONIA
     Route: 055
  11. GRANULOCYTE COLONY STIMULATING FACTOR [Concomitant]
     Indication: APLASTIC ANAEMIA
     Route: 065
  12. EXJADE [Concomitant]
     Indication: IRON OVERLOAD
     Route: 048
  13. HEPARIN LMW [Concomitant]
     Indication: PROPHYLAXIS
     Route: 065
  14. URSODESOXYCHOLIC ACID [Concomitant]
     Indication: PROPHYLAXIS
     Route: 048
  15. FRESH FROZEN PLASMA [Concomitant]
     Indication: PROPHYLAXIS
     Route: 065
  16. CYCLOPHOSPHAMIDE MONOHYDRATE [Concomitant]
     Indication: PREMEDICATION
     Dosage: 500 mg/m2, Unknown/D
     Route: 065
  17. ANTITHYMOCYTE IMMUNOGLOBULIN (RABBIT) [Concomitant]
     Indication: PREMEDICATION
     Dosage: 1.25 mg/kg, Unknown/D
     Route: 065
  18. FLUDARA [Concomitant]
     Indication: PREMEDICATION
     Dosage: 25 mg/m2, Unknown/D
     Route: 065
  19. CORTICOSTEROIDS [Concomitant]
     Indication: LIVER TRANSPLANT REJECTION
     Route: 065
  20. CORTICOSTEROIDS [Concomitant]
     Indication: HISTIOCYTOSIS HAEMATOPHAGIC
     Route: 066

REACTIONS (6)
  - Drug ineffective [Unknown]
  - Liver transplant rejection [Unknown]
  - Acute graft versus host disease [Unknown]
  - Septic shock [Fatal]
  - Pneumocystis jiroveci pneumonia [Unknown]
  - Renal tubular disorder [Not Recovered/Not Resolved]
